FAERS Safety Report 5636206-3 (Version None)
Quarter: 2008Q1

REPORT INFORMATION
  Report Type: 
  Country: None (occurrence: None)
  Receive Date: 20080220
  Receipt Date: 20080220
  Transmission Date: 20080703
  Serious: Yes (Hospitalization)
  Sender: FDA-Public Use
  Company Number: None

PATIENT
  Sex: Female
  Weight: 55.3 kg

DRUGS (1)
  1. TEMOZOLOMIDE [Suspect]
     Dosage: 5060 MG

REACTIONS (7)
  - DEHYDRATION [None]
  - GASTROENTERITIS VIRAL [None]
  - HYPOMAGNESAEMIA [None]
  - HYPONATRAEMIA [None]
  - HYPOTENSION [None]
  - LYMPHOPENIA [None]
  - RENAL FAILURE [None]
